FAERS Safety Report 8191034-2 (Version None)
Quarter: 2012Q1

REPORT INFORMATION
  Report Type: 
  Country: None (occurrence: None)
  Receive Date: 20120307
  Receipt Date: 20120305
  Transmission Date: 20120608
  Serious: Yes (Other)
  Sender: FDA-Public Use
  Company Number: ES-BAYER-2012-021201

PATIENT
  Age: 60 Year
  Sex: Female

DRUGS (2)
  1. PRAZIQUANTEL [Suspect]
     Indication: ECHINOCOCCIASIS
     Dosage: DAILY DOSE 40 MG/KG
     Route: 048
  2. ALBENDAZOLE [Suspect]
     Indication: ECHINOCOCCIASIS
     Dosage: DAILY DOSE 15 MG/KG
     Route: 048

REACTIONS (1)
  - PANCYTOPENIA [None]
